FAERS Safety Report 22141546 (Version 2)
Quarter: 2023Q4

REPORT INFORMATION
  Report Type: Report from Study
  Country: FR (occurrence: FR)
  Receive Date: 20230327
  Receipt Date: 20231106
  Transmission Date: 20240110
  Serious: Yes (Hospitalization)
  Sender: FDA-Public Use
  Company Number: FR-PFIZER INC-PV202300050117

PATIENT
  Age: 61 Year
  Sex: Female
  Weight: 85 kg

DRUGS (6)
  1. LORLATINIB [Suspect]
     Active Substance: LORLATINIB
     Indication: Non-small cell lung cancer
     Dosage: 50 MG, DAILY
     Route: 048
     Dates: start: 20180522, end: 20220131
  2. ACETAMINOPHEN [Concomitant]
     Active Substance: ACETAMINOPHEN
     Indication: Arthralgia
     Dosage: UNK, AS NEEDED
     Route: 048
     Dates: start: 20200501
  3. LYRICA [Concomitant]
     Active Substance: PREGABALIN
     Indication: Paraesthesia
     Dosage: UNK, AS NEEDED
     Route: 048
     Dates: start: 20180810
  4. ALDACTONE [Concomitant]
     Active Substance: SPIRONOLACTONE
     Indication: Dyspnoea
     Dosage: UNK, AS NEEDED
     Route: 048
     Dates: start: 20180910
  5. PRAVASTATIN SODIUM [Concomitant]
     Active Substance: PRAVASTATIN SODIUM
     Indication: Hypercholesterolaemia
     Dosage: UNK, AS NEEDED
     Route: 048
     Dates: start: 20180606
  6. LEVOTHYROXINE [Concomitant]
     Active Substance: LEVOTHYROXINE
     Indication: Thyroid hormone replacement therapy
     Dosage: UNK, AS NEEDED
     Route: 048
     Dates: start: 20100501

REACTIONS (1)
  - Aortic valve stenosis [Recovered/Resolved]

NARRATIVE: CASE EVENT DATE: 20220201
